FAERS Safety Report 23208545 (Version 1)
Quarter: 2023Q4

REPORT INFORMATION
  Report Type: Spontaneous
  Country: BE (occurrence: BE)
  Receive Date: 20231121
  Receipt Date: 20231121
  Transmission Date: 20240110
  Serious: Yes (Other)
  Sender: FDA-Public Use
  Company Number: BE-AMGEN-BELSP2023206411

PATIENT
  Sex: Male

DRUGS (2)
  1. OTEZLA [Suspect]
     Active Substance: APREMILAST
     Indication: Psoriasis
     Dosage: UNK UNK, UNK
     Route: 065
     Dates: start: 2023, end: 2023
  2. OTEZLA [Suspect]
     Active Substance: APREMILAST
     Dosage: UNK UNK, UNK
     Route: 065
     Dates: start: 202309

REACTIONS (3)
  - Diverticulitis [Unknown]
  - Urinary tract infection [Unknown]
  - Psoriasis [Unknown]

NARRATIVE: CASE EVENT DATE: 20230101
